FAERS Safety Report 5270041-3 (Version None)
Quarter: 2007Q1

REPORT INFORMATION
  Report Type: 
  Country: None (occurrence: None)
  Receive Date: 20061213
  Receipt Date: 20030729
  Transmission Date: 20070707
  Serious: Yes (Other)
  Sender: FDA-Public Use
  Company Number: 2003UW09613

PATIENT
  Age: 86 Year
  Sex: Female
  Weight: 58.514 kg

DRUGS (2)
  1. IRESSA [Suspect]
     Dosage: 250 MG
     Dates: start: 20030623
  2. WARFARIN SODIUM [Suspect]

REACTIONS (3)
  - DRUG INTERACTION POTENTIATION [None]
  - INTERNATIONAL NORMALISED RATIO INCREASED [None]
  - PROTHROMBIN TIME PROLONGED [None]
